FAERS Safety Report 22154390 (Version 1)
Quarter: 2023Q1

REPORT INFORMATION
  Report Type: Spontaneous
  Country: CA (occurrence: CA)
  Receive Date: 20230330
  Receipt Date: 20230330
  Transmission Date: 20230418
  Serious: Yes (Other)
  Sender: FDA-Public Use
  Company Number: CA-CELLTRION INC.-2022CA021338

PATIENT

DRUGS (3)
  1. INFLECTRA [Suspect]
     Active Substance: INFLIXIMAB-DYYB
     Indication: Crohn^s disease
     Dosage: 1 DF, INDUCTION WEEK 0, 2 AND 4, THEN EVERY 4 WEEKS
     Route: 042
     Dates: start: 20230105, end: 20230105
  2. INFLECTRA [Suspect]
     Active Substance: INFLIXIMAB-DYYB
     Dosage: 1 DF, INDUCTION WEEK 0, 2 AND 4, THEN EVERY 4 WEEKS
     Route: 042
     Dates: start: 20230118, end: 20230118
  3. INFLECTRA [Suspect]
     Active Substance: INFLIXIMAB-DYYB
     Dosage: 1 DF, INDUCTION WEEK 0, 2 AND 4, THEN EVERY 4 WEEKS
     Route: 042
     Dates: start: 20230207

REACTIONS (14)
  - Haematochezia [Not Recovered/Not Resolved]
  - Dyspnoea [Recovered/Resolved]
  - Chest pain [Recovered/Resolved]
  - Erythema [Recovered/Resolved]
  - Malaise [Unknown]
  - Pallor [Unknown]
  - Nausea [Not Recovered/Not Resolved]
  - Faeces discoloured [Not Recovered/Not Resolved]
  - Abdominal pain [Not Recovered/Not Resolved]
  - Gastroenteritis [Unknown]
  - Diarrhoea [Unknown]
  - Frequent bowel movements [Unknown]
  - Faeces soft [Unknown]
  - Off label use [Unknown]

NARRATIVE: CASE EVENT DATE: 20230101
